FAERS Safety Report 14675735 (Version 1)
Quarter: 2018Q1

REPORT INFORMATION
  Report Type: Spontaneous
  Country: US (occurrence: US)
  Receive Date: 20180323
  Receipt Date: 20180323
  Transmission Date: 20180509
  Serious: No
  Sender: FDA-Public Use
  Company Number: US-REGENERON PHARMACEUTICALS, INC.-2017-20478

PATIENT

DRUGS (2)
  1. NAPROXEN. [Concomitant]
     Active Substance: NAPROXEN
     Indication: PRODUCT USED FOR UNKNOWN INDICATION
  2. ARCALYST [Suspect]
     Active Substance: RILONACEPT
     Indication: STILL^S DISEASE
     Dosage: 22 MG, WEEKLY
     Route: 058
     Dates: start: 20170623

REACTIONS (6)
  - Off label use [None]
  - Decreased activity [Recovered/Resolved]
  - Arthralgia [Unknown]
  - Drug ineffective [Unknown]
  - Body temperature fluctuation [Unknown]
  - Injection site erythema [Unknown]

NARRATIVE: CASE EVENT DATE: 20170807
